FAERS Safety Report 4694323-9 (Version None)
Quarter: 2005Q2

REPORT INFORMATION
  Report Type: 
  Country: None (occurrence: None)
  Receive Date: 20050620
  Receipt Date: 20050606
  Transmission Date: 20051028
  Serious: Yes (Other)
  Sender: FDA-Public Use
  Company Number: US-AMGEN-US137177

PATIENT
  Sex: Female
  Weight: 55.8 kg

DRUGS (2)
  1. ENBREL [Suspect]
     Indication: PSORIATIC ARTHROPATHY
     Route: 058
     Dates: start: 20040201, end: 20041201
  2. CRESTOR [Concomitant]
     Dates: start: 20040101

REACTIONS (5)
  - CHORIORETINOPATHY [None]
  - CHOROIDITIS [None]
  - CONDITION AGGRAVATED [None]
  - PSORIASIS [None]
  - UVEITIS [None]
